FAERS Safety Report 6309222-6 (Version None)
Quarter: 2009Q3

REPORT INFORMATION
  Report Type: 
  Country: None (occurrence: None)
  Receive Date: 20090814
  Receipt Date: 20090804
  Transmission Date: 20100115
  Serious: Yes (Other)
  Sender: FDA-Public Use
  Company Number: JP-PFIZER INC-2009252877

PATIENT
  Age: 70 Year

DRUGS (1)
  1. ZITHROMAC SR [Suspect]
     Dosage: UNK
     Route: 048

REACTIONS (2)
  - DIARRHOEA [None]
  - LOSS OF CONSCIOUSNESS [None]
